FAERS Safety Report 13714404 (Version 1)
Quarter: 2017Q3

REPORT INFORMATION
  Report Type: Spontaneous
  Country: IN (occurrence: IN)
  Receive Date: 20170704
  Receipt Date: 20170704
  Transmission Date: 20171127
  Serious: Yes (Other)
  Sender: FDA-Public Use
  Company Number: IN-ELI_LILLY_AND_COMPANY-IN201706009251

PATIENT
  Age: 48 Year
  Sex: Female

DRUGS (2)
  1. CISPLATIN. [Suspect]
     Active Substance: CISPLATIN
     Indication: GALLBLADDER CANCER METASTATIC
     Dosage: 25 MG/M2, CYCLICAL
     Route: 042
  2. GEMCITABINE HYDROCHLORIDE. [Suspect]
     Active Substance: GEMCITABINE HYDROCHLORIDE
     Indication: GALLBLADDER CANCER METASTATIC
     Dosage: 1000 MG/M2, CYCLICAL
     Route: 042

REACTIONS (2)
  - Neuropathy peripheral [Unknown]
  - Anaemia [Unknown]
